FAERS Safety Report 7908014-1 (Version None)
Quarter: 2011Q4

REPORT INFORMATION
  Report Type: 
  Country: None (occurrence: None)
  Receive Date: 20111110
  Receipt Date: 20111101
  Transmission Date: 20120403
  Serious: Yes (Hospitalization)
  Sender: FDA-Public Use
  Company Number: US-ASTRAZENECA-2009SE30997

PATIENT
  Age: 18958 Day
  Sex: Male
  Weight: 112.9 kg

DRUGS (6)
  1. PLAVIX [Concomitant]
  2. PEPCID [Concomitant]
  3. NEXIUM [Suspect]
     Route: 048
  4. CRESTOR [Suspect]
     Route: 048
  5. TOPROL-XL [Concomitant]
     Route: 048
  6. SYNTHROID [Concomitant]

REACTIONS (6)
  - MUSCLE SPASMS [None]
  - CARDIAC DISORDER [None]
  - NEPHROLITHIASIS [None]
  - DRUG HYPERSENSITIVITY [None]
  - MYALGIA [None]
  - BLOOD VISCOSITY INCREASED [None]
